FAERS Safety Report 13357736 (Version 1)
Quarter: 2017Q1

REPORT INFORMATION
  Report Type: Spontaneous
  Country: US (occurrence: US)
  Receive Date: 20170322
  Receipt Date: 20170322
  Transmission Date: 20170429
  Serious: No
  Sender: FDA-Public Use
  Company Number: US-ZYDUS-010939

PATIENT
  Age: 90 Year
  Sex: Female

DRUGS (2)
  1. ATENOLOL. [Suspect]
     Active Substance: ATENOLOL
     Indication: HYPERTENSION
     Route: 048
     Dates: start: 20160417, end: 20160418
  2. SOTALOL/SOTALOL HYDROCHLORIDE [Concomitant]
     Indication: CARDIAC PACEMAKER INSERTION
     Route: 048

REACTIONS (3)
  - Feeling abnormal [Recovered/Resolved]
  - Nausea [Recovered/Resolved]
  - Hypoaesthesia [Recovered/Resolved]

NARRATIVE: CASE EVENT DATE: 20160417
